FAERS Safety Report 5636288-9 (Version None)
Quarter: 2008Q1

REPORT INFORMATION
  Report Type: 
  Country: None (occurrence: None)
  Receive Date: 20080220
  Receipt Date: 20080220
  Transmission Date: 20080703
  Serious: No
  Sender: FDA-Public Use
  Company Number: None

PATIENT
  Age: 71 Year
  Sex: Female
  Weight: 65.318 kg

DRUGS (2)
  1. VYTORIN [Suspect]
     Indication: HYPERCHOLESTEROLAEMIA
     Dosage: 1 TAB DAILY ORAL
     Route: 048
     Dates: start: 20050513, end: 20071227
  2. VYTORIN [Suspect]
     Indication: HYPERCHOLESTEROLAEMIA
     Dosage: 1 TAB DAILY ORAL
     Route: 048
     Dates: start: 20071228, end: 20080103

REACTIONS (2)
  - CHROMATURIA [None]
  - MUSCLE SPASMS [None]
